FAERS Safety Report 10176210 (Version 2)
Quarter: 2014Q2

REPORT INFORMATION
  Report Type: Spontaneous
  Country: PL (occurrence: PL)
  Receive Date: 20140516
  Receipt Date: 20140516
  Transmission Date: 20141212
  Serious: Yes (Hospitalization)
  Sender: FDA-Public Use
  Company Number: US-RANBAXY-2011US-49963

PATIENT
  Sex: Female
  Weight: 3.6 kg

DRUGS (9)
  1. HYDROCHLOROTHIAZIDE [Suspect]
     Indication: PRODUCT USED FOR UNKNOWN INDICATION
     Dosage: UNK
     Route: 064
  2. DOPEGYT [Suspect]
     Indication: PRODUCT USED FOR UNKNOWN INDICATION
     Dosage: UNK
     Route: 064
  3. TARCEFOXIM [Suspect]
     Indication: PRODUCT USED FOR UNKNOWN INDICATION
     Dosage: UNK
     Route: 064
  4. CLEXANE [Suspect]
     Indication: PRODUCT USED FOR UNKNOWN INDICATION
     Dosage: UNK
     Route: 064
  5. ISOPTIN [Suspect]
     Indication: PRODUCT USED FOR UNKNOWN INDICATION
     Dosage: UNK, UNK
     Route: 064
  6. HUMULIN N/ HUMULIN R [Suspect]
     Indication: GESTATIONAL DIABETES
     Dosage: 60 J / DAY (21J HUMULINN AND 39J HUMULINR)
     Route: 064
  7. KALIPOZ [Suspect]
     Indication: PRODUCT USED FOR UNKNOWN INDICATION
     Dosage: UNK
     Route: 064
  8. NYSTATIN [Suspect]
     Indication: PRODUCT USED FOR UNKNOWN INDICATION
     Dosage: UNK
     Route: 064
  9. ASPARAGINE [Suspect]
     Indication: PRODUCT USED FOR UNKNOWN INDICATION
     Dosage: UNK
     Route: 064

REACTIONS (12)
  - Premature baby [Recovering/Resolving]
  - Hepatomegaly [Recovering/Resolving]
  - Respiratory disorder [Recovering/Resolving]
  - Hypoglycaemia [Recovering/Resolving]
  - Jaundice [Recovering/Resolving]
  - Cardiomegaly [Recovering/Resolving]
  - Soft tissue disorder [Recovering/Resolving]
  - Hepatomegaly [Recovering/Resolving]
  - Ventricular hypertrophy [Recovering/Resolving]
  - Waist circumference increased [Recovering/Resolving]
  - Tachycardia [Recovering/Resolving]
  - Foetal exposure during pregnancy [Recovering/Resolving]
